FAERS Safety Report 22069024 (Version 1)
Quarter: 2023Q1

REPORT INFORMATION
  Report Type: Spontaneous
  Country: US (occurrence: US)
  Receive Date: 20230307
  Receipt Date: 20230307
  Transmission Date: 20230418
  Serious: No
  Sender: FDA-Public Use
  Company Number: US-AMNEAL PHARMACEUTICALS-2022-AMRX-03605

PATIENT
  Sex: Female
  Weight: 73.469 kg

DRUGS (8)
  1. RYTARY [Suspect]
     Active Substance: CARBIDOPA\LEVODOPA
     Indication: Parkinson^s disease
     Dosage: 24 CAPS/DAY
     Route: 048
     Dates: start: 2020
  2. RYTARY [Suspect]
     Active Substance: CARBIDOPA\LEVODOPA
     Dosage: 2 CAPSULES(23.75/95 MG), TID
     Route: 048
  3. SENOKOT [Concomitant]
     Active Substance: SENNOSIDES
     Indication: Product used for unknown indication
     Dosage: 03 PILLS A DAY
  4. LINACLOTIDE [Concomitant]
     Active Substance: LINACLOTIDE
     Indication: Product used for unknown indication
     Dosage: 72 MG 1 CAPSULE TWICE A DAY
  5. MIRALAX [Concomitant]
     Active Substance: POLYETHYLENE GLYCOL 3350
     Indication: Irritable bowel syndrome
     Dosage: 01 POUCH MIXED IN HALF BOTTLE OF WATER SEVERE IBS
     Route: 065
  6. DEXTROSE\ELECTROLYTES NOS [Concomitant]
     Active Substance: DEXTROSE\ELECTROLYTES NOS
     Indication: Constipation
     Route: 065
  7. SYNTHROID [Concomitant]
     Active Substance: LEVOTHYROXINE SODIUM
     Indication: Thyroid disorder
     Dosage: 50 MCG ONCE DAILY
     Route: 065
  8. CLONAZEPAM [Concomitant]
     Active Substance: CLONAZEPAM
     Indication: Sleep disorder
     Dosage: 0.5 MG, TWICE DAILY
     Route: 065

REACTIONS (6)
  - Hypersensitivity [Not Recovered/Not Resolved]
  - Head titubation [Not Recovered/Not Resolved]
  - Dystonia [Recovering/Resolving]
  - Balance disorder [Recovering/Resolving]
  - Locked-in syndrome [Recovering/Resolving]
  - Dizziness [Recovering/Resolving]
